FAERS Safety Report 9918707 (Version 2)
Quarter: 2014Q1

REPORT INFORMATION
  Report Type: Spontaneous
  Country: US (occurrence: US)
  Receive Date: 20140224
  Receipt Date: 20140311
  Transmission Date: 20141002
  Serious: Yes (Other)
  Sender: FDA-Public Use
  Company Number: US-ROCHE-1351488

PATIENT
  Age: 2 Year
  Sex: Female

DRUGS (2)
  1. TAMIFLU [Suspect]
     Indication: INFLUENZA
     Dosage: (A TEASPOON)   FOR 5 DAYS
     Route: 048
     Dates: start: 20140214
  2. IBUPROFEN [Concomitant]
     Indication: PYREXIA
     Route: 065

REACTIONS (4)
  - Depressed level of consciousness [Unknown]
  - Convulsion [Unknown]
  - Delusion [Unknown]
  - Musculoskeletal stiffness [Unknown]
